FAERS Safety Report 15899088 (Version 1)
Quarter: 2019Q1

REPORT INFORMATION
  Report Type: Spontaneous
  Country: None (occurrence: US)
  Receive Date: 20190201
  Receipt Date: 20190201
  Transmission Date: 20190417
  Serious: No
  Sender: FDA-Public Use
  Company Number: US-MEDAC PHARMA, INC.-2062027

PATIENT
  Age: 68 Year
  Sex: Female

DRUGS (1)
  1. RASUVO [Suspect]
     Active Substance: METHOTREXATE SODIUM
     Indication: ARTHRITIS
     Dates: start: 20180312

REACTIONS (2)
  - Product dose omission [Not Recovered/Not Resolved]
  - Arthritis [Not Recovered/Not Resolved]
